FAERS Safety Report 13053297 (Version 1)
Quarter: 2016Q4

REPORT INFORMATION
  Report Type: Spontaneous
  Country: US (occurrence: US)
  Receive Date: 20161221
  Receipt Date: 20161221
  Transmission Date: 20170207
  Serious: No
  Sender: FDA-Public Use
  Company Number: None

PATIENT
  Age: 61 Year
  Sex: Female

DRUGS (1)
  1. ENBREL [Suspect]
     Active Substance: ETANERCEPT

REACTIONS (4)
  - Injection site bruising [None]
  - Injection site paraesthesia [None]
  - Peripheral swelling [None]
  - Drug ineffective [None]

NARRATIVE: CASE EVENT DATE: 20161220
